FAERS Safety Report 6917205 (Version 13)
Quarter: 2013Q3

REPORT INFORMATION
  Report Type: Report from Study
  Country: PL (occurrence: PL)
  Receive Date: 20090224
  Receipt Date: 20130807
  Transmission Date: 20140515
  Serious: Yes (Hospitalization, Disabling)
  Sender: FDA-Public Use
  Company Number: PHHO2009PL02372

PATIENT
  Age: 61 Year
  Sex: Male
  Weight: 94 kg

DRUGS (8)
  1. AMN107 [Suspect]
     Indication: CHRONIC MYELOID LEUKAEMIA
     Dosage: 800 MG, DAILY
     Route: 048
     Dates: start: 20080731, end: 20080829
  2. AMN107 [Suspect]
     Dosage: NO TREATMENT RECEIVED
     Dates: start: 20100830, end: 20100924
  3. AMN107 [Suspect]
     Dosage: 800 MG, BID
     Dates: start: 20100925
  4. BISOPROLOL [Concomitant]
     Indication: HYPERTENSION
     Dosage: 1X1
     Dates: start: 20080312
  5. DIAPREL [Concomitant]
     Indication: DIABETES MELLITUS
     Dosage: 1X1
     Dates: start: 20081224
  6. POLOCARD [Concomitant]
     Indication: PROPHYLAXIS
     Dosage: 1X1
     Dates: start: 20080220
  7. ATORIS [Concomitant]
     Indication: HYPERTENSION
     Dosage: 1X1
     Dates: start: 20080216
  8. NEBIVOLOL [Concomitant]
     Indication: HYPERTENSION
     Dosage: 1X1
     Dates: start: 20121220

REACTIONS (7)
  - Myocardial infarction [Recovered/Resolved]
  - Angina pectoris [Recovered/Resolved]
  - Chest pain [Recovered/Resolved with Sequelae]
  - Troponin I increased [Recovered/Resolved with Sequelae]
  - Blood creatine phosphokinase increased [Recovered/Resolved with Sequelae]
  - Blood creatine phosphokinase MB increased [Recovered/Resolved with Sequelae]
  - Peripheral arterial occlusive disease [Recovering/Resolving]
